FAERS Safety Report 16362158 (Version 2)
Quarter: 2019Q2

REPORT INFORMATION
  Report Type: Report from Study
  Country: US (occurrence: US)
  Receive Date: 20190528
  Receipt Date: 20190610
  Transmission Date: 20190711
  Serious: Yes (Hospitalization)
  Sender: FDA-Public Use
  Company Number: US-BAYER-2019-094049

PATIENT
  Sex: Male

DRUGS (62)
  1. ALPRAZOLAM. [Concomitant]
     Active Substance: ALPRAZOLAM
     Indication: ANXIETY
     Dosage: 0.5 MG, TID
  2. GABAPENTIN. [Concomitant]
     Active Substance: GABAPENTIN
     Indication: NEUROPATHY PERIPHERAL
     Dosage: UNK
     Dates: start: 20190510
  3. DIPHENOXYLATE [Concomitant]
     Active Substance: DIPHENOXYLATE
     Indication: DIARRHOEA
     Dosage: 1 DF, PRN
     Dates: start: 20190506
  4. ACETAMINOPHEN. [Concomitant]
     Active Substance: ACETAMINOPHEN
     Indication: PAIN
     Dosage: 300 MG
     Dates: start: 20170602, end: 20180419
  5. ACETAMINOPHEN. [Concomitant]
     Active Substance: ACETAMINOPHEN
     Indication: MUSCULOSKELETAL PAIN
     Dosage: 325 MG
     Dates: start: 20190405
  6. ACETAMINOPHEN. [Concomitant]
     Active Substance: ACETAMINOPHEN
     Indication: PAIN
     Dosage: 325 MG
     Dates: start: 20190510, end: 20190510
  7. HYDROCODONE [Concomitant]
     Active Substance: HYDROCODONE
     Indication: PAIN
     Dosage: 7.5 MG EVERY FOUR HOURS
     Dates: start: 20180222, end: 20180416
  8. HYDROMORPHONE [Concomitant]
     Active Substance: HYDROMORPHONE
     Indication: PAIN
     Dosage: 1 MG
     Dates: start: 20181013, end: 20181031
  9. HYDROMORPHONE [Concomitant]
     Active Substance: HYDROMORPHONE
     Indication: PAIN
     Dosage: 0.5 MG
     Dates: start: 20190128, end: 20190128
  10. MORPHINE SULFATE. [Concomitant]
     Active Substance: MORPHINE SULFATE
     Indication: PAIN
     Dosage: 4 MG ONCE
     Dates: start: 20180911, end: 20180911
  11. MIDAZOLAM [Concomitant]
     Active Substance: MIDAZOLAM HYDROCHLORIDE
     Dosage: 0.5 MG
     Dates: start: 20190404, end: 20190404
  12. IMODIUM [Concomitant]
     Active Substance: LOPERAMIDE HYDROCHLORIDE
     Indication: DIARRHOEA
     Dosage: 0.5 MG, QD
     Dates: start: 20190404, end: 20190404
  13. STIVARGA [Suspect]
     Active Substance: REGORAFENIB
     Indication: HEPATOCELLULAR CARCINOMA
     Dosage: 120 MG
     Dates: start: 2019, end: 20190411
  14. FLUOXETINE HCL [Concomitant]
     Active Substance: FLUOXETINE HYDROCHLORIDE
     Indication: DEPRESSION
     Dosage: 10 MG DAILY
  15. OXYCODONE HYDROCHLORIDE. [Concomitant]
     Active Substance: OXYCODONE HYDROCHLORIDE
     Indication: PAIN
     Dosage: 10 MG  EVERY FOUR HOURS
     Dates: start: 20180910
  16. FENTANYL. [Concomitant]
     Active Substance: FENTANYL
     Dosage: 50 ?G QD
     Dates: start: 20190509, end: 20190509
  17. PROMETHAZINE [Concomitant]
     Active Substance: PROMETHAZINE\PROMETHAZINE HYDROCHLORIDE
     Indication: COUGH
     Dosage: 5 ML
     Dates: start: 20190506
  18. CEFAZOLIN [Concomitant]
     Active Substance: CEFAZOLIN
     Dosage: 1 G
     Dates: start: 20190404, end: 20190404
  19. DEXAMETHASONE. [Concomitant]
     Active Substance: DEXAMETHASONE
     Dosage: 4 MG, BID
     Dates: start: 20190128, end: 20190404
  20. CYCLOBENZAPRINE. [Concomitant]
     Active Substance: CYCLOBENZAPRINE
     Indication: PAIN
     Dosage: 10 MG, BID
     Dates: start: 20170626, end: 20180409
  21. ATORVASTATIN [Concomitant]
     Active Substance: ATORVASTATIN
  22. SALMETEROL [Concomitant]
     Active Substance: SALMETEROL
     Dosage: 100 ?G DAILY
  23. GABAPENTIN. [Concomitant]
     Active Substance: GABAPENTIN
     Indication: NEUROPATHY PERIPHERAL
     Dosage: 300 MG, BID
     Dates: start: 20190405, end: 20190505
  24. CALCIUM ACETATE. [Concomitant]
     Active Substance: CALCIUM ACETATE
     Dosage: 667 THREE TIMES PER DAY
     Dates: start: 20190307
  25. FLUTICASONE PROPIONATE. [Concomitant]
     Active Substance: FLUTICASONE PROPIONATE
     Dosage: UNK
     Dates: start: 20190222
  26. NIVOLUMAB [Concomitant]
     Active Substance: NIVOLUMAB
  27. ACETAMINOPHEN. [Concomitant]
     Active Substance: ACETAMINOPHEN
     Indication: PAIN
     Dosage: 325 MG
     Dates: start: 20190514, end: 20190514
  28. BUDESONIDE;FORMOTEROL [Concomitant]
     Active Substance: BUDESONIDE\FORMOTEROL
     Dosage: 2 MG, BID
     Dates: start: 20190510, end: 20190510
  29. LIDOCAINE;PRILOCAINE [Concomitant]
  30. STIVARGA [Suspect]
     Active Substance: REGORAFENIB
     Indication: HEPATOCELLULAR CARCINOMA
     Dosage: 120 MG
     Dates: start: 20190110, end: 20190124
  31. ESOMEPRAZOLE MAGNESIUM. [Concomitant]
     Active Substance: ESOMEPRAZOLE MAGNESIUM
     Indication: GASTROOESOPHAGEAL REFLUX DISEASE
     Dosage: 40 MG, QD
  32. BUDESONIDE. [Concomitant]
     Active Substance: BUDESONIDE
     Dosage: 2 TWICE DAY
     Dates: start: 20190510
  33. BUDESONIDE. [Concomitant]
     Active Substance: BUDESONIDE
     Dosage: 0.25 MG, BID
     Dates: start: 20190514
  34. DEXAMETHASONE. [Concomitant]
     Active Substance: DEXAMETHASONE
     Dosage: 8 MG
     Dates: start: 20190128, end: 20190128
  35. WARFARIN [Concomitant]
     Active Substance: WARFARIN
     Dosage: UNK
     Dates: start: 20180322
  36. CODEINE [Concomitant]
     Active Substance: CODEINE
     Indication: PAIN
     Dosage: 60 MG
     Dates: start: 20170602, end: 20180419
  37. HYDROCODONE [Concomitant]
     Active Substance: HYDROCODONE
     Indication: PAIN
     Dosage: 10 MG
     Dates: start: 20190514
  38. STIVARGA [Suspect]
     Active Substance: REGORAFENIB
     Indication: HEPATOCELLULAR CARCINOMA
     Dosage: 80 MG
     Dates: start: 20181218
  39. FLUTICASONE FUROATE [Concomitant]
     Active Substance: FLUTICASONE FUROATE
     Indication: SEASONAL ALLERGY
     Dosage: 27.5 ?G
  40. METHOCARBAMOL. [Concomitant]
     Active Substance: METHOCARBAMOL
     Indication: PAIN
     Dosage: 500 MG EVERY EIGHT HOURS
     Dates: start: 20180222
  41. MORPHINE [Concomitant]
     Active Substance: MORPHINE
     Dosage: 4 MG
     Dates: start: 20190509, end: 20190509
  42. LORATADINE. [Concomitant]
     Active Substance: LORATADINE
     Dosage: 10 MG DAILY
     Dates: start: 20190510
  43. MIDAZOLAM [Concomitant]
     Active Substance: MIDAZOLAM HYDROCHLORIDE
     Dosage: 1 MG, QD
     Dates: start: 20190404, end: 20190404
  44. HYDROCODONE [Concomitant]
     Active Substance: HYDROCODONE
     Indication: MUSCULOSKELETAL PAIN
     Dosage: 10 MG
     Dates: start: 20190405
  45. APIXABAN [Concomitant]
     Active Substance: APIXABAN
     Indication: ATRIAL FIBRILLATION
     Dosage: 2.5 MG
  46. CETIRIZINE [Concomitant]
     Active Substance: CETIRIZINE HYDROCHLORIDE
     Indication: SEASONAL ALLERGY
     Dosage: 10 MG DAILY
  47. HYDRALAZINE [Concomitant]
     Active Substance: HYDRALAZINE HYDROCHLORIDE
     Indication: HYPERTENSION
     Dosage: 100 MG NEEDED
  48. LOSARTAN POTASSIUM. [Concomitant]
     Active Substance: LOSARTAN POTASSIUM
     Indication: HYPERTENSION
     Dosage: 50 MG
  49. HYDROMORPHONE [Concomitant]
     Active Substance: HYDROMORPHONE
     Indication: BACK PAIN
     Dosage: UNK
     Dates: start: 20190125, end: 20190125
  50. HYDROMORPHONE [Concomitant]
     Active Substance: HYDROMORPHONE
     Indication: PAIN
     Dosage: 1 MG
     Dates: start: 20190202, end: 20190202
  51. SODIUM CHLORIDE. [Concomitant]
     Active Substance: SODIUM CHLORIDE
     Dosage: 200 ML
     Dates: start: 20190510, end: 20190510
  52. FLUTICASONE PROPIONATE. [Concomitant]
     Active Substance: FLUTICASONE PROPIONATE
     Dosage: 50 ?G DAILY
     Dates: start: 20190222
  53. PROCHLORPERAZINE. [Concomitant]
     Active Substance: PROCHLORPERAZINE
     Indication: PAIN
     Dosage: 325 MG EVERY FOUR HOURS
     Dates: start: 20180312, end: 20180410
  54. IBUPROFEN. [Concomitant]
     Active Substance: IBUPROFEN
     Indication: PAIN
     Dosage: 600 MG, TID
     Dates: start: 20180222
  55. ROSUVASTATIN CALCIUM. [Concomitant]
     Active Substance: ROSUVASTATIN CALCIUM
     Indication: HYPERLIPIDAEMIA
  56. UREA. [Concomitant]
     Active Substance: UREA
     Indication: DRY SKIN
     Dosage: 20 %
  57. MAGNESIUM OXIDE. [Concomitant]
     Active Substance: MAGNESIUM OXIDE
     Dosage: 400 MG
  58. HYDROMORPHONE [Concomitant]
     Active Substance: HYDROMORPHONE
     Indication: PAIN
     Dosage: 0.5 MG
     Dates: start: 20190127, end: 20190127
  59. FENTANYL. [Concomitant]
     Active Substance: FENTANYL
     Dosage: 25 ?G QD
  60. SODIUM CHLORIDE. [Concomitant]
     Active Substance: SODIUM CHLORIDE
     Dosage: 500 ML
     Dates: start: 20190509, end: 20190509
  61. INSULIN LISPRO [Concomitant]
     Active Substance: INSULIN LISPRO
     Indication: DIABETES MELLITUS
     Dosage: FOUR TIMES PER DAY
     Dates: start: 20190510, end: 20190510
  62. PANTOPRAZOLE [Concomitant]
     Active Substance: PANTOPRAZOLE
     Indication: GASTROOESOPHAGEAL REFLUX DISEASE
     Dosage: 10 MG DAILY
     Dates: start: 20180322

REACTIONS (2)
  - Diarrhoea [Recovered/Resolved]
  - Pneumonia [Recovering/Resolving]

NARRATIVE: CASE EVENT DATE: 20190510
